FAERS Safety Report 17678901 (Version 1)
Quarter: 2020Q2

REPORT INFORMATION
  Report Type: Report from Study
  Country: FR (occurrence: FR)
  Receive Date: 20200417
  Receipt Date: 20200417
  Transmission Date: 20200714
  Serious: Yes (Hospitalization)
  Sender: FDA-Public Use
  Company Number: FR-ROCHE-2583293

PATIENT
  Age: 79 Year
  Sex: Female

DRUGS (6)
  1. RITUXIMAB. [Suspect]
     Active Substance: RITUXIMAB
     Indication: EOSINOPHILIC GRANULOMATOSIS WITH POLYANGIITIS
     Route: 042
  2. PULMICORT TURBUHALER [Concomitant]
     Active Substance: BUDESONIDE
  3. IMUREL [AZATHIOPRINE] [Suspect]
     Active Substance: AZATHIOPRINE
     Indication: EOSINOPHILIC GRANULOMATOSIS WITH POLYANGIITIS
     Route: 048
  4. FLECAINE LP [Concomitant]
     Active Substance: FLECAINIDE
  5. FOLIC ACID. [Concomitant]
     Active Substance: FOLIC ACID
  6. XARELTO [Concomitant]
     Active Substance: RIVAROXABAN

REACTIONS (1)
  - Coronary artery stenosis [Recovered/Resolved]

NARRATIVE: CASE EVENT DATE: 20200205
